FAERS Safety Report 13381415 (Version 2)
Quarter: 2018Q2

REPORT INFORMATION
  Report Type: Spontaneous
  Country: US (occurrence: US)
  Receive Date: 20170329
  Receipt Date: 20180621
  Transmission Date: 20180711
  Serious: Yes (Other)
  Sender: FDA-Public Use
  Company Number: US-ASTRAZENECA-2017SE29750

PATIENT
  Sex: Male
  Weight: 84.8 kg

DRUGS (29)
  1. ALLOPURINOL. [Concomitant]
     Active Substance: ALLOPURINOL
  2. OMEPRAZOLE. [Concomitant]
     Active Substance: OMEPRAZOLE
  3. BRIMONIDINE [Concomitant]
     Active Substance: BRIMONIDINE TARTRATE
  4. RAMELTEON [Concomitant]
     Active Substance: RAMELTEON
  5. FUROSEMIDE. [Concomitant]
     Active Substance: FUROSEMIDE
  6. ENDOMETHASON [Concomitant]
     Active Substance: DEXAMETHASONE\HYDROCORTISONE ACETATE\PARAFORMALDEHYDE
  7. LISINOPRIL. [Concomitant]
     Active Substance: LISINOPRIL
  8. HYDROCODONE [Concomitant]
     Active Substance: HYDROCODONE
  9. LOSARTAN. [Concomitant]
     Active Substance: LOSARTAN
  10. TUMS [Concomitant]
     Active Substance: CALCIUM CARBONATE
  11. PEPTO-BISMOL [Concomitant]
     Active Substance: BISMUTH SUBSALICYLATE
  12. TRAMADOL. [Concomitant]
     Active Substance: TRAMADOL
  13. GABAPENTIN. [Concomitant]
     Active Substance: GABAPENTIN
  14. LORATADINE. [Concomitant]
     Active Substance: LORATADINE
  15. IBUPROFEN. [Concomitant]
     Active Substance: IBUPROFEN
  16. LEVOTHYROXINE. [Concomitant]
     Active Substance: LEVOTHYROXINE
  17. FLOMAX [Concomitant]
     Active Substance: TAMSULOSIN HYDROCHLORIDE
     Indication: FLUID RETENTION
  18. DICLOFENAC [Concomitant]
     Active Substance: DICLOFENAC
  19. AZITHROMYCIN ANHYDROUS. [Concomitant]
     Active Substance: AZITHROMYCIN ANHYDROUS
  20. LISINOPRIL. [Concomitant]
     Active Substance: LISINOPRIL
  21. INDOMETHACIN. [Concomitant]
     Active Substance: INDOMETHACIN
  22. CARVEDIOL [Concomitant]
     Active Substance: CARVEDILOL
  23. PERCOCET [Concomitant]
     Active Substance: ACETAMINOPHEN\OXYCODONE HYDROCHLORIDE
  24. NEXIUM [Suspect]
     Active Substance: ESOMEPRAZOLE MAGNESIUM
     Route: 048
  25. LATANOPROST. [Concomitant]
     Active Substance: LATANOPROST
  26. ASPIRIN. [Concomitant]
     Active Substance: ASPIRIN
  27. TAMSULOSIN [Concomitant]
     Active Substance: TAMSULOSIN
  28. SIMVASTATIN. [Concomitant]
     Active Substance: SIMVASTATIN
  29. LEVOCETIRIZINE DIHYDROCHLORIDE. [Concomitant]
     Active Substance: LEVOCETIRIZINE DIHYDROCHLORIDE

REACTIONS (3)
  - Dyspepsia [Unknown]
  - Chest pain [Unknown]
  - Chronic kidney disease [Unknown]
